FAERS Safety Report 21200466 (Version 1)
Quarter: 2022Q3

REPORT INFORMATION
  Report Type: Spontaneous
  Country: US (occurrence: None)
  Receive Date: 20220810
  Receipt Date: 20220810
  Transmission Date: 20221027
  Serious: No
  Sender: FDA-Public Use
  Company Number: None

PATIENT
  Age: 83 Year
  Sex: Male

DRUGS (1)
  1. BOTOX [Suspect]
     Active Substance: ONABOTULINUMTOXINA
     Dosage: OTHER QUANTITY : 155;?OTHER FREQUENCY : OTHER;?
     Route: 030
     Dates: start: 202109, end: 20220731

REACTIONS (1)
  - Death [None]

NARRATIVE: CASE EVENT DATE: 20220810
